FAERS Safety Report 8013048-5 (Version None)
Quarter: 2011Q4

REPORT INFORMATION
  Report Type: 
  Country: None (occurrence: None)
  Receive Date: 20111229
  Receipt Date: 20111219
  Transmission Date: 20120403
  Serious: Yes (Other)
  Sender: FDA-Public Use
  Company Number: US-JNJFOC-20111208624

PATIENT
  Sex: Female
  Weight: 77.11 kg

DRUGS (8)
  1. REMICADE [Suspect]
     Indication: CROHN'S DISEASE
     Route: 042
     Dates: start: 20111020, end: 20111101
  2. NEXIUM [Concomitant]
     Indication: GASTROOESOPHAGEAL REFLUX DISEASE
     Route: 048
  3. AMITRIPTYLINE HCL [Concomitant]
     Indication: SLEEP DISORDER
     Dosage: 75MG/TABLET/75MG/HS/ORAL
     Route: 048
     Dates: start: 20090101
  4. ATENOLOL [Concomitant]
     Indication: BLOOD PRESSURE
     Route: 048
  5. LIALDA [Concomitant]
     Indication: CROHN'S DISEASE
     Route: 048
  6. VITAMIN B-12 [Concomitant]
     Indication: GASTRIC BYPASS
  7. REMICADE [Suspect]
     Route: 042
     Dates: start: 20091001
  8. CYCLOBENZAPRINE [Concomitant]
     Indication: MUSCLE SPASMS
     Route: 048

REACTIONS (11)
  - BLOOD PRESSURE INCREASED [None]
  - JOINT LOCK [None]
  - BURSA INJURY [None]
  - MUSCLE TIGHTNESS [None]
  - LARYNGITIS [None]
  - FALL [None]
  - ARTHRALGIA [None]
  - HYPERHIDROSIS [None]
  - POLYDIPSIA [None]
  - DIARRHOEA [None]
  - ABASIA [None]
